FAERS Safety Report 19669110 (Version 1)
Quarter: 2021Q3

REPORT INFORMATION
  Report Type: Spontaneous
  Country: US (occurrence: US)
  Receive Date: 20210806
  Receipt Date: 20210806
  Transmission Date: 20211014
  Serious: Yes (Other)
  Sender: FDA-Public Use
  Company Number: US-ACCORD-139243

PATIENT
  Age: 37 Year
  Sex: Female

DRUGS (12)
  1. PERJETA [Suspect]
     Active Substance: PERTUZUMAB
     Indication: BREAST CANCER STAGE IV
     Dates: start: 20160926, end: 20170109
  2. ZOFRAN [Concomitant]
     Active Substance: ONDANSETRON HYDROCHLORIDE
  3. OMEGA 3 [Concomitant]
     Active Substance: OMEGA-3 FATTY ACIDS
  4. DECADRON [Concomitant]
     Active Substance: DEXAMETHASONE
  5. DOCOSAHEXANOIC ACID [Concomitant]
     Active Substance: DOCONEXENT
  6. DOCOSAHEXANOIC ACID/EICOSAPENTAENOIC ACID/TOCOPHEROL [Concomitant]
  7. TAMOXIFEN [Concomitant]
     Active Substance: TAMOXIFEN
     Dates: start: 20170127
  8. DOCETAXEL ACCORD [Suspect]
     Active Substance: DOCETAXEL
     Indication: BREAST CANCER STAGE IV
     Dosage: DOSE: 118 MG FROM 26?SEP?2016 TO 17?OCT?2016 AND 124 MG FROM 07?NOV?2016 TO 09?JAN?2017
     Dates: start: 20160926, end: 20170109
  9. PARAPLATIN [Suspect]
     Active Substance: CARBOPLATIN
     Indication: BREAST CANCER STAGE IV
     Dates: start: 20160926, end: 20170109
  10. FISH OIL [Concomitant]
     Active Substance: FISH OIL
  11. NEULASTA [Concomitant]
     Active Substance: PEGFILGRASTIM
  12. HERCEPTIN [Suspect]
     Active Substance: TRASTUZUMAB
     Indication: BREAST CANCER STAGE IV
     Dates: start: 20160926, end: 20170109

REACTIONS (1)
  - Alopecia [Not Recovered/Not Resolved]

NARRATIVE: CASE EVENT DATE: 20170709
